FAERS Safety Report 9384754 (Version 1)
Quarter: 2013Q3

REPORT INFORMATION
  Report Type: Spontaneous
  Country: GB (occurrence: None)
  Receive Date: 20130701
  Receipt Date: 20130701
  Transmission Date: 20140515
  Serious: Yes (Other)
  Sender: FDA-Public Use
  Company Number: AUR-APL-2013-05211

PATIENT
  Sex: Male

DRUGS (2)
  1. BISOPROLOL [Suspect]
     Indication: PRODUCT USED FOR UNKNOWN INDICATION
     Dosage: VARIOUS DAILY DOSES FROM 5MG - 2.5MG?
  2. SPIRONOLACTONE (SPIRONOLACTONE) [Suspect]
     Indication: PRODUCT USED FOR UNKNOWN INDICATION
     Dosage: STOPPED?

REACTIONS (11)
  - Loss of consciousness [None]
  - Dizziness [None]
  - Local swelling [None]
  - Constipation [None]
  - Overdose [None]
  - Joint swelling [None]
  - Cardiac failure [None]
  - Rash [None]
  - Drug intolerance [None]
  - Hypotension [None]
  - Product quality issue [None]
